FAERS Safety Report 6250489-0 (Version None)
Quarter: 2009Q2

REPORT INFORMATION
  Report Type: 
  Country: None (occurrence: None)
  Receive Date: 20090626
  Receipt Date: 20090610
  Transmission Date: 20091009
  Serious: Yes (Other)
  Sender: FDA-Public Use
  Company Number: 2009001766

PATIENT

DRUGS (1)
  1. ERLOTINIB (ERLOTINIB) (TABLET) (ERLOTINIB) [Suspect]
     Indication: NEOPLASM MALIGNANT
     Dosage: ORAL
     Route: 048

REACTIONS (3)
  - DYSGEUSIA [None]
  - PERIODONTITIS [None]
  - STOMATITIS [None]
